FAERS Safety Report 8379033-9 (Version None)
Quarter: 2012Q2

REPORT INFORMATION
  Report Type: 
  Country: None (occurrence: None)
  Receive Date: 20120522
  Receipt Date: 20120522
  Transmission Date: 20120825
  Serious: Yes (Life-Threatening, Hospitalization)
  Sender: FDA-Public Use
  Company Number: None

PATIENT
  Sex: Female

DRUGS (1)
  1. ENBREL [Suspect]
     Indication: RHEUMATOID ARTHRITIS
     Dosage: 50MG QW SQ
     Route: 058
     Dates: start: 19960101, end: 20120421

REACTIONS (6)
  - LIVER DISORDER [None]
  - SKIN DISCOLOURATION [None]
  - PAIN IN EXTREMITY [None]
  - HAEMOGLOBIN DECREASED [None]
  - PLATELET COUNT DECREASED [None]
  - HAEMATOCRIT DECREASED [None]
